FAERS Safety Report 7495273-5 (Version None)
Quarter: 2011Q2

REPORT INFORMATION
  Report Type: 
  Country: None (occurrence: None)
  Receive Date: 20110523
  Receipt Date: 20110513
  Transmission Date: 20111010
  Serious: Yes (Hospitalization)
  Sender: FDA-Public Use
  Company Number: FR-BRISTOL-MYERS SQUIBB COMPANY-15734148

PATIENT
  Age: 83 Year
  Sex: Female

DRUGS (4)
  1. SPRYCEL [Suspect]
     Indication: CHRONIC MYELOID LEUKAEMIA
     Dosage: DECREASED TO 50MG/DAY IN JAN2010
     Dates: start: 20091201
  2. HYDREA [Suspect]
     Dosage: SEP2002-NOV2002 OCT2005-MAR2008 (2TABS/DAY) FOR 2 YEARS
     Route: 048
     Dates: start: 20020901, end: 20080301
  3. GLEEVEC [Suspect]
     Dosage: APR2005:600MG/DAY
     Dates: start: 20021101, end: 20051001
  4. TASIGNA [Suspect]
     Dates: start: 20080301, end: 20091201

REACTIONS (1)
  - BREAST CANCER [None]
